FAERS Safety Report 12412541 (Version 1)
Quarter: 2016Q2

REPORT INFORMATION
  Report Type: Spontaneous
  Country: US (occurrence: US)
  Receive Date: 20160527
  Receipt Date: 20160527
  Transmission Date: 20160815
  Serious: Yes (Other)
  Sender: FDA-Public Use
  Company Number: US-PFIZER INC-2016273143

PATIENT

DRUGS (1)
  1. GABAPENTIN. [Suspect]
     Active Substance: GABAPENTIN
     Dosage: UNK

REACTIONS (6)
  - Asthenia [Unknown]
  - Pain [Unknown]
  - Injury [Unknown]
  - Diabetes mellitus [Unknown]
  - Carpal tunnel syndrome [Unknown]
  - Confusional state [Unknown]
